FAERS Safety Report 21163719 (Version 1)
Quarter: 2022Q3

REPORT INFORMATION
  Report Type: Spontaneous
  Country: KR (occurrence: KR)
  Receive Date: 20220803
  Receipt Date: 20220803
  Transmission Date: 20221026
  Serious: Yes (Other)
  Sender: FDA-Public Use
  Company Number: KR-JNJFOC-20220743679

PATIENT
  Age: 26 Year
  Sex: Male

DRUGS (6)
  1. SPRAVATO [Suspect]
     Active Substance: ESKETAMINE
     Indication: Depression
     Dosage: 2 (56 MG) SPRAVATO DEVICES?TOTAL OF 7 SPRAVATO TREATMENTS
  2. SPRAVATO [Suspect]
     Active Substance: ESKETAMINE
     Indication: Major depression
  3. SPRAVATO [Suspect]
     Active Substance: ESKETAMINE
     Indication: Suicidal ideation
  4. DESVENLAFAXINE [Concomitant]
     Active Substance: DESVENLAFAXINE
     Indication: Depression
  5. DESVENLAFAXINE [Concomitant]
     Active Substance: DESVENLAFAXINE
     Indication: Major depression
  6. DESVENLAFAXINE [Concomitant]
     Active Substance: DESVENLAFAXINE
     Indication: Suicidal ideation

REACTIONS (10)
  - Suicidal ideation [Recovered/Resolved]
  - Fear of death [Unknown]
  - Sensory disturbance [Recovered/Resolved]
  - Negative thoughts [Recovered/Resolved]
  - Product dose omission issue [Unknown]
  - Somnolence [Recovered/Resolved]
  - Hypoaesthesia [Recovering/Resolving]
  - Dizziness [Recovered/Resolved]
  - Fatigue [Unknown]
  - Illusion [Recovered/Resolved]
